FAERS Safety Report 13704486 (Version 1)
Quarter: 2017Q2

REPORT INFORMATION
  Report Type: Spontaneous
  Country: FR (occurrence: FR)
  Receive Date: 20170630
  Receipt Date: 20170630
  Transmission Date: 20170830
  Serious: Yes (Death, Other)
  Sender: FDA-Public Use
  Company Number: FR-TEVA-783799ACC

PATIENT
  Age: 50 Year
  Sex: Male

DRUGS (1)
  1. BENDAMUSTINE HYDROCHLORIDE. [Suspect]
     Active Substance: BENDAMUSTINE HYDROCHLORIDE
     Indication: BLASTIC PLASMACYTOID DENDRITIC CELL NEOPLASIA
     Dosage: (D1 D2 EVERY 3 WEEKS ? 1 COURSE)
     Route: 042

REACTIONS (3)
  - Disease progression [Unknown]
  - Off label use [Unknown]
  - Death [Fatal]
